FAERS Safety Report 9353627 (Version 1)
Quarter: 2013Q2

REPORT INFORMATION
  Report Type: Spontaneous
  Country: IT (occurrence: IT)
  Receive Date: 20130618
  Receipt Date: 20130618
  Transmission Date: 20140414
  Serious: Yes (Hospitalization)
  Sender: FDA-Public Use
  Company Number: IT-AMGEN-ITASP2013042251

PATIENT
  Age: 68 Year
  Sex: Female

DRUGS (2)
  1. GRANULOKINE [Suspect]
     Indication: CHEMOTHERAPY
     Dosage: (30 MU-INJECTABLE VIAL 1 ML) 1 POSOLOGIC UNIT, DAILY
     Route: 058
     Dates: start: 20130530, end: 20130530
  2. CHEMOTHERAPEUTICS [Concomitant]
     Dosage: UNK

REACTIONS (3)
  - Abdominal pain [Recovering/Resolving]
  - Face oedema [Recovering/Resolving]
  - Generalised erythema [Recovering/Resolving]
